FAERS Safety Report 8391274-3 (Version None)
Quarter: 2012Q2

REPORT INFORMATION
  Report Type: 
  Country: None (occurrence: None)
  Receive Date: 20120529
  Receipt Date: 20111024
  Transmission Date: 20120825
  Serious: No
  Sender: FDA-Public Use
  Company Number: US-ABBOTT-11P-163-0862004-00

PATIENT
  Sex: Female
  Weight: 78.088 kg

DRUGS (18)
  1. ADVAIR DISKUS 100/50 [Concomitant]
     Indication: ASTHMA
  2. ESTRACE [Concomitant]
     Indication: PRODUCT USED FOR UNKNOWN INDICATION
  3. BACLOFEN [Concomitant]
     Indication: MUSCLE SPASTICITY
  4. NORCO [Concomitant]
     Indication: PAIN PROPHYLAXIS
     Dosage: EVERY 8 HOURS
  5. LASIX [Concomitant]
     Indication: PRODUCT USED FOR UNKNOWN INDICATION
  6. ACCLATE [Concomitant]
     Indication: ASTHMA
  7. PROVENTIL-HFA [Concomitant]
     Indication: ASTHMA
  8. AMBIEN [Concomitant]
     Indication: INSOMNIA
  9. PHENERGAN [Concomitant]
     Indication: NAUSEA
  10. MIRAPEX [Concomitant]
     Indication: RESTLESS LEGS SYNDROME
  11. COPAXONE [Concomitant]
     Indication: MULTIPLE SCLEROSIS
  12. EFFEXOR XR [Concomitant]
     Indication: DEPRESSION
  13. FIORINAL [Concomitant]
     Indication: HEADACHE
  14. ZEMPLAR [Suspect]
     Indication: NEPHROPATHY
     Dates: start: 20110901, end: 20110901
  15. ZEMPLAR [Suspect]
     Dates: start: 20110930
  16. ACIPHEX [Concomitant]
     Indication: DYSPEPSIA
  17. SYNTHROID [Concomitant]
     Indication: HORMONE REPLACEMENT THERAPY
  18. CLONAZEPAM [Concomitant]
     Indication: ANXIETY

REACTIONS (10)
  - DIARRHOEA [None]
  - NAUSEA [None]
  - ANXIETY [None]
  - DIZZINESS [None]
  - RESTLESSNESS [None]
  - CHILLS [None]
  - BALANCE DISORDER [None]
  - HYPERHIDROSIS [None]
  - DRY MOUTH [None]
  - AKATHISIA [None]
